FAERS Safety Report 7854465-3 (Version None)
Quarter: 2011Q4

REPORT INFORMATION
  Report Type: 
  Country: None (occurrence: None)
  Receive Date: 20111026
  Receipt Date: 20111019
  Transmission Date: 20120403
  Serious: Yes (Death)
  Sender: FDA-Public Use
  Company Number: US-PFIZER INC-2011246320

PATIENT
  Sex: Female

DRUGS (1)
  1. TORISEL [Suspect]
     Indication: OVARIAN CANCER
     Dosage: 20 MG, WEEKLY

REACTIONS (2)
  - DISEASE PROGRESSION [None]
  - OVARIAN CANCER [None]
